FAERS Safety Report 19906107 (Version 1)
Quarter: 2021Q3

REPORT INFORMATION
  Report Type: Spontaneous
  Country: US (occurrence: US)
  Receive Date: 20210930
  Receipt Date: 20210930
  Transmission Date: 20211014
  Serious: No
  Sender: FDA-Public Use
  Company Number: US-MYLANLABS-2021M1050966

PATIENT
  Age: 79 Year
  Sex: Male

DRUGS (1)
  1. CORTIFOAM [Suspect]
     Active Substance: HYDROCORTISONE ACETATE
     Indication: COLITIS
     Dosage: ONE APPLICATOR RECTALLY AT BEDTIME
     Route: 054
     Dates: start: 20210805, end: 20210809

REACTIONS (3)
  - Device issue [Unknown]
  - Product quality issue [Unknown]
  - Product use issue [Unknown]

NARRATIVE: CASE EVENT DATE: 202108
